FAERS Safety Report 9655374 (Version 2)
Quarter: 2013Q4

REPORT INFORMATION
  Report Type: Spontaneous
  Country: US (occurrence: US)
  Receive Date: 20131029
  Receipt Date: 20131029
  Transmission Date: 20140711
  Serious: No
  Sender: FDA-Public Use
  Company Number: US-PURDUE-USA-2012-0087165

PATIENT
  Sex: 0
  Weight: 95.24 kg

DRUGS (7)
  1. OXYCONTIN (NDA 22-272) [Suspect]
     Indication: PAIN
     Dosage: 40 MG, TID
     Dates: end: 20120113
  2. CIMZIA [Concomitant]
     Indication: PRODUCT USED FOR UNKNOWN INDICATION
     Dosage: 400 MG, EVERY 28 DAYS
  3. XANAX [Concomitant]
     Indication: PRODUCT USED FOR UNKNOWN INDICATION
     Dosage: 1 MG, TID
  4. PROMETHAZINE [Concomitant]
     Indication: NAUSEA
     Dosage: 50 MG, PRN
  5. TRAZODONE HCL [Concomitant]
     Indication: PRODUCT USED FOR UNKNOWN INDICATION
     Dosage: 50 MG, HS
  6. TESTOSTERONE [Concomitant]
     Indication: PRODUCT USED FOR UNKNOWN INDICATION
     Dosage: UNK, PRN FOR 10 DAYS PER MONTH
  7. OPANA [Concomitant]
     Indication: PAIN
     Dosage: 10 MG, Q8H PRN

REACTIONS (14)
  - Drug withdrawal syndrome [Recovered/Resolved]
  - Rhinorrhoea [Recovered/Resolved]
  - Nausea [Recovered/Resolved]
  - Arthralgia [Recovered/Resolved]
  - Insomnia [Recovered/Resolved]
  - Joint swelling [Unknown]
  - Activities of daily living impaired [Unknown]
  - Pain in extremity [Unknown]
  - Back pain [Unknown]
  - Fatigue [Unknown]
  - Drug effect decreased [Unknown]
  - Inadequate analgesia [Unknown]
  - Constipation [Unknown]
  - Diarrhoea [Unknown]
